FAERS Safety Report 7584447-0 (Version None)
Quarter: 2011Q2

REPORT INFORMATION
  Report Type: 
  Country: None (occurrence: None)
  Receive Date: 20110630
  Receipt Date: 20110622
  Transmission Date: 20111010
  Serious: Yes (Other)
  Sender: FDA-Public Use
  Company Number: AU-BAXTER-2011BH020659

PATIENT
  Age: 70 Year
  Sex: Male

DRUGS (4)
  1. TISSEEL VH KIT [Suspect]
     Indication: TISSUE SEALING
     Route: 006
  2. BISMUTH [Concomitant]
     Indication: TISSUE SEALING
     Route: 006
  3. ABSORBABLE GELATIN SPONGE [Concomitant]
     Indication: TISSUE SEALING
     Route: 006
  4. TISSEEL VH KIT [Suspect]
     Indication: OFF LABEL USE
     Route: 006

REACTIONS (2)
  - POST PROCEDURAL COMPLICATION [None]
  - INTRACRANIAL HYPOTENSION [None]
